FAERS Safety Report 12599069 (Version 1)
Quarter: 2016Q3

REPORT INFORMATION
  Report Type: Spontaneous
  Country: IN (occurrence: IN)
  Receive Date: 20160727
  Receipt Date: 20160727
  Transmission Date: 20161109
  Serious: Yes (Life-Threatening, Hospitalization)
  Sender: FDA-Public Use
  Company Number: IN-STRIDES ARCOLAB LIMITED-2016SP010190

PATIENT

DRUGS (7)
  1. TENOFOVIR [Concomitant]
     Active Substance: TENOFOVIR
     Indication: HIV INFECTION
     Dosage: UNK
  2. PREDNISOLONE. [Concomitant]
     Active Substance: PREDNISOLONE
     Indication: BURKITT^S LYMPHOMA
     Dosage: UNK
  3. NEVIRAPINE. [Suspect]
     Active Substance: NEVIRAPINE
     Indication: HIV INFECTION
     Dosage: UNK
  4. EFAVIRENZ [Concomitant]
     Active Substance: EFAVIRENZ
     Indication: HIV INFECTION
     Dosage: UNK
  5. CYCLOPHOSPHAMIDE. [Concomitant]
     Active Substance: CYCLOPHOSPHAMIDE
     Indication: BURKITT^S LYMPHOMA
     Dosage: UNK
  6. VINCRISTINE [Concomitant]
     Active Substance: VINCRISTINE
     Indication: BURKITT^S LYMPHOMA
     Dosage: UNK
  7. LAMIVUDINE. [Concomitant]
     Active Substance: LAMIVUDINE
     Indication: HIV INFECTION
     Dosage: UNK

REACTIONS (11)
  - Toxic epidermal necrolysis [Recovered/Resolved]
  - Pruritus [Recovered/Resolved]
  - Oral mucosa erosion [Recovered/Resolved]
  - Rash maculo-papular [Recovered/Resolved]
  - Genital erosion [Recovered/Resolved]
  - Leukopenia [Recovered/Resolved]
  - Lower respiratory tract infection [Recovered/Resolved]
  - Skin exfoliation [Recovered/Resolved]
  - Nikolsky^s sign [Recovered/Resolved]
  - Dermatitis bullous [Recovered/Resolved]
  - Drug-induced liver injury [Recovered/Resolved]
